FAERS Safety Report 23527346 (Version 1)
Quarter: 2024Q1

REPORT INFORMATION
  Report Type: Spontaneous
  Country: JP (occurrence: JP)
  Receive Date: 20240215
  Receipt Date: 20240215
  Transmission Date: 20240409
  Serious: Yes (Other)
  Sender: FDA-Public Use
  Company Number: JP-AMNEAL PHARMACEUTICALS-2024-AMRX-00473

PATIENT
  Age: 36 Year
  Sex: Female

DRUGS (4)
  1. DAPSONE [Suspect]
     Active Substance: DAPSONE
     Indication: Lepromatous leprosy
     Dosage: 100 MILLIGRAM, DAILY
     Route: 065
  2. CLOFAZIMINE [Suspect]
     Active Substance: CLOFAZIMINE
     Indication: Lepromatous leprosy
     Dosage: 300 MILLIGRAM, 1 /MONTH (ONCE A MONTH)
     Route: 065
  3. CLOFAZIMINE [Suspect]
     Active Substance: CLOFAZIMINE
     Dosage: 50 MILLIGRAM, DAILY
     Route: 065
  4. RIFAMPIN [Concomitant]
     Active Substance: RIFAMPIN
     Indication: Lepromatous leprosy
     Dosage: 600 MILLIGRAM, 1 /MONTH (ONCE A MONTH)
     Route: 065

REACTIONS (3)
  - Neutropenia [Unknown]
  - Anaemia [Unknown]
  - Methaemoglobinaemia [Unknown]
